FAERS Safety Report 15859339 (Version 1)
Quarter: 2019Q1

REPORT INFORMATION
  Report Type: Spontaneous
  Country: US (occurrence: US)
  Receive Date: 20190123
  Receipt Date: 20190123
  Transmission Date: 20190417
  Serious: No
  Sender: FDA-Public Use
  Company Number: US-SA-2019SA012176

PATIENT
  Age: 50 Year
  Sex: Female

DRUGS (1)
  1. AUBAGIO [Suspect]
     Active Substance: TERIFLUNOMIDE
     Dosage: UNK
     Dates: start: 201711

REACTIONS (5)
  - Hepatic enzyme abnormal [Unknown]
  - White blood cell count decreased [Unknown]
  - Fatigue [Unknown]
  - Blood pressure increased [Unknown]
  - Thyroid function test abnormal [Unknown]
